FAERS Safety Report 18011701 (Version 8)
Quarter: 2022Q1

REPORT INFORMATION
  Report Type: Spontaneous
  Country: US (occurrence: US)
  Receive Date: 20200713
  Receipt Date: 20220131
  Transmission Date: 20220423
  Serious: No
  Sender: FDA-Public Use
  Company Number: US-BIOGEN-2020BI00897361

PATIENT
  Age: 59 Year
  Sex: Female

DRUGS (10)
  1. TECFIDERA [Suspect]
     Active Substance: DIMETHYL FUMARATE
     Indication: Multiple sclerosis
     Route: 048
     Dates: start: 20200210
  2. TECFIDERA [Suspect]
     Active Substance: DIMETHYL FUMARATE
     Route: 048
  3. TECFIDERA [Suspect]
     Active Substance: DIMETHYL FUMARATE
     Dosage: STARTING DOSE
     Route: 048
     Dates: start: 2020, end: 2020
  4. TECFIDERA [Suspect]
     Active Substance: DIMETHYL FUMARATE
     Dosage: MAINTENANCE DOSE
     Route: 048
     Dates: start: 2020
  5. TECFIDERA [Suspect]
     Active Substance: DIMETHYL FUMARATE
     Route: 048
     Dates: start: 202008
  6. PAROXETINE HYDROCHLORIDE [Concomitant]
     Active Substance: PAROXETINE HYDROCHLORIDE
     Route: 065
  7. XARELTO [Concomitant]
     Active Substance: RIVAROXABAN
     Route: 065
  8. OMEPRAZOLE [Concomitant]
     Active Substance: OMEPRAZOLE
     Route: 065
  9. BACLOFEN [Concomitant]
     Active Substance: BACLOFEN
     Route: 065
  10. CLONAZEPAM [Concomitant]
     Active Substance: CLONAZEPAM
     Route: 065

REACTIONS (13)
  - Inappropriate schedule of product administration [Unknown]
  - Product dose omission issue [Unknown]
  - Product dose omission in error [Unknown]
  - Pain [Not Recovered/Not Resolved]
  - Hyperhidrosis [Unknown]
  - Urinary incontinence [Unknown]
  - Malaise [Unknown]
  - Musculoskeletal stiffness [Unknown]
  - Hot flush [Not Recovered/Not Resolved]
  - Flushing [Not Recovered/Not Resolved]
  - Rash macular [Not Recovered/Not Resolved]
  - Illness [Unknown]
  - Gait inability [Unknown]

NARRATIVE: CASE EVENT DATE: 20200708
